FAERS Safety Report 4647844-9 (Version None)
Quarter: 2005Q2

REPORT INFORMATION
  Report Type: 
  Country: None (occurrence: None)
  Receive Date: 20050428
  Receipt Date: 20050311
  Transmission Date: 20051028
  Serious: Yes (Hospitalization)
  Sender: FDA-Public Use
  Company Number: FR-GLAXOSMITHKLINE-B0374448A

PATIENT
  Age: 60 Year
  Sex: Male

DRUGS (5)
  1. MALARONE [Suspect]
     Indication: MALARIA PROPHYLAXIS
     Dosage: 1TAB PER DAY
     Route: 048
     Dates: start: 20050220, end: 20050311
  2. APROVEL [Concomitant]
     Indication: HYPERTENSION
     Route: 048
     Dates: end: 20050118
  3. COAPROVEL [Concomitant]
     Indication: HYPERTENSION
     Route: 048
     Dates: start: 20050118
  4. HEPATITIS A VACCINE [Concomitant]
     Indication: HEPATITIS
     Dates: start: 20050118, end: 20050118
  5. HEPATITIS A VACCINE [Concomitant]
     Indication: PROPHYLAXIS
     Dates: start: 20050118, end: 20050118

REACTIONS (10)
  - ABDOMINAL PAIN [None]
  - ALANINE AMINOTRANSFERASE INCREASED [None]
  - BILE DUCT STONE [None]
  - BILIARY DILATATION [None]
  - BLOOD ALKALINE PHOSPHATASE INCREASED [None]
  - BLOOD BILIRUBIN INCREASED [None]
  - INFECTION [None]
  - JAUNDICE [None]
  - PAIN [None]
  - VOMITING [None]
